FAERS Safety Report 5972971-3 (Version None)
Quarter: 2008Q4

REPORT INFORMATION
  Report Type: 
  Country: None (occurrence: None)
  Receive Date: 20081201
  Receipt Date: 20081125
  Transmission Date: 20090506
  Serious: Yes (Death, Hospitalization, Other)
  Sender: FDA-Public Use
  Company Number: PHHY2008JP28312

PATIENT
  Age: 77 Year
  Sex: Female

DRUGS (1)
  1. TOFRANIL [Suspect]
     Indication: POLLAKIURIA
     Dosage: 25 MG/DAY
     Route: 048
     Dates: start: 20080801

REACTIONS (2)
  - CARDIAC FAILURE [None]
  - PARKINSON'S DISEASE [None]
